FAERS Safety Report 25911648 (Version 1)
Quarter: 2025Q4

REPORT INFORMATION
  Report Type: Report from Study
  Country: US (occurrence: US)
  Receive Date: 20251013
  Receipt Date: 20251013
  Transmission Date: 20260117
  Serious: Yes (Other)
  Sender: ALEXION PHARMACEUTICALS
  Company Number: A202209589

PATIENT
  Age: 63 Year
  Sex: Male

DRUGS (1)
  1. STRENSIQ [Suspect]
     Active Substance: ASFOTASE ALFA
     Indication: Phosphorus metabolism disorder
     Dosage: 1 MILLIGRAM/KILOGRAM, SIX TIMES/WEEK
     Route: 065

REACTIONS (7)
  - Cervical spinal stenosis [Unknown]
  - Computerised tomogram heart abnormal [Unknown]
  - Skin discolouration [Unknown]
  - Erythema [Unknown]
  - Headache [Unknown]
  - Fatigue [Unknown]
  - Musculoskeletal pain [Unknown]
